FAERS Safety Report 16651767 (Version 3)
Quarter: 2019Q4

REPORT INFORMATION
  Report Type: Spontaneous
  Country: US (occurrence: US)
  Receive Date: 20190731
  Receipt Date: 20191010
  Transmission Date: 20200122
  Serious: No
  Sender: FDA-Public Use
  Company Number: US-PFIZER INC-2016554398

PATIENT
  Age: 71 Year
  Sex: Male
  Weight: 77.98 kg

DRUGS (22)
  1. NORVASC [Concomitant]
     Active Substance: AMLODIPINE BESYLATE
     Dosage: 10 MG, 1X/DAY
     Route: 048
  2. NORVASC [Concomitant]
     Active Substance: AMLODIPINE BESYLATE
     Dosage: UNK
  3. LIDODERM [Concomitant]
     Active Substance: LIDOCAINE
     Indication: PAIN
     Dosage: 5 %, AS NEEDED (PLACE 3 PATCHES ONTO THE SKIN ONE TIME A DAY. REMOVE PATCH (ES) AFTER 12 HOURS)
     Route: 062
  4. CATAPRES [Concomitant]
     Active Substance: CLONIDINE HYDROCHLORIDE
     Dosage: UNK
  5. DURAGESIC [Concomitant]
     Active Substance: FENTANYL
     Dosage: UNK (25 MCG/HR; PLACE 1 PATCH ONTO THE SKIN EVERY 48 HOURS. CHANGE PATCH EVERY 48 HOURS.)
     Route: 062
  6. IMITREX [Concomitant]
     Active Substance: SUMATRIPTAN SUCCINATE
     Indication: MIGRAINE
     Dosage: 50 MG, AS NEEDED (ONE TIME FOR UP TO 1 DOSE, DOSE MAY BE REPEATED AFTER 2 HOURS)
     Route: 048
  7. LYRICA [Suspect]
     Active Substance: PREGABALIN
     Indication: HYPOAESTHESIA
     Dosage: 150 MG, 2X/DAY
     Route: 048
     Dates: start: 20161117
  8. MICROZIDE [HYDROCHLOROTHIAZIDE] [Concomitant]
     Dosage: UNK
  9. SUMATRIPTAN SUCCINATE. [Concomitant]
     Active Substance: SUMATRIPTAN SUCCINATE
     Indication: PAIN
     Dosage: UNK UNK, AS NEEDED (60MG/0.5 ML; INJECT 1 EACH)
     Route: 058
  10. LYRICA [Suspect]
     Active Substance: PREGABALIN
     Indication: NEUROPATHY PERIPHERAL
  11. ZOSTAVAX [Concomitant]
     Active Substance: VARICELLA-ZOSTER VIRUS STRAIN OKA/MERCK LIVE ANTIGEN
     Dosage: UNK (109400 UNT/0.65 ML; 0.65 ML ONE TIME)
     Route: 058
  12. LIORESAL [Concomitant]
     Active Substance: BACLOFEN
     Dosage: 10 MG, 3X/DAY (TAKE WITH FOOD)
     Route: 048
  13. LIORESAL [Concomitant]
     Active Substance: BACLOFEN
     Dosage: UNK
  14. COMPAZINE [Concomitant]
     Active Substance: PROCHLORPERAZINE MALEATE
     Indication: NAUSEA
     Dosage: 5 MG, AS NEEDED (EVERY EIGHT HOURS)
     Route: 048
  15. LYRICA [Suspect]
     Active Substance: PREGABALIN
     Indication: PARAESTHESIA
     Dosage: 150 MG, 2X/DAY
     Route: 048
  16. FLOMAX [Concomitant]
     Active Substance: TAMSULOSIN HYDROCHLORIDE
     Dosage: UNK
  17. IMITREX [Concomitant]
     Active Substance: SUMATRIPTAN SUCCINATE
     Dosage: UNK
  18. KENALOG [Concomitant]
     Active Substance: TRIAMCINOLONE ACETONIDE
     Indication: PRURITUS
     Dosage: 0.1 %, AS NEEDED (TWO TIMES A DAY)
     Route: 061
  19. KENALOG [Concomitant]
     Active Substance: TRIAMCINOLONE ACETONIDE
     Dosage: UNK
  20. CATAPRES [Concomitant]
     Active Substance: CLONIDINE HYDROCHLORIDE
     Indication: WITHDRAWAL SYNDROME
     Dosage: 0.1 MG, AS NEEDED (THREE TIMES A DAY)
     Route: 048
  21. MICROZIDE [HYDROCHLOROTHIAZIDE] [Concomitant]
     Dosage: 12.5 MG, 1X/DAY
     Route: 048
  22. FLOMAX [Concomitant]
     Active Substance: TAMSULOSIN HYDROCHLORIDE
     Dosage: 0.4 MG, 1X/DAY
     Route: 048

REACTIONS (5)
  - Hypoacusis [Unknown]
  - Eating disorder [Recovering/Resolving]
  - Vomiting [Recovering/Resolving]
  - Withdrawal syndrome [Recovering/Resolving]
  - Malaise [Recovered/Resolved]
